FAERS Safety Report 15264842 (Version 2)
Quarter: 2018Q3

REPORT INFORMATION
  Report Type: Spontaneous
  Country: JP (occurrence: JP)
  Receive Date: 20180810
  Receipt Date: 20180829
  Transmission Date: 20181010
  Serious: Yes (Other)
  Sender: FDA-Public Use
  Company Number: JP-ROCHE-2164272

PATIENT
  Age: 76 Year
  Sex: Female

DRUGS (2)
  1. DENOSINE (JAPAN) [Suspect]
     Active Substance: GANCICLOVIR
     Indication: CYTOMEGALOVIRUS INFECTION
     Route: 041
     Dates: start: 20180615, end: 20180628
  2. DENOSINE (JAPAN) [Suspect]
     Active Substance: GANCICLOVIR
     Route: 041
     Dates: start: 20180629, end: 20180711

REACTIONS (3)
  - Creatinine renal clearance decreased [Unknown]
  - Drug effect incomplete [Recovered/Resolved]
  - Viral load increased [Recovered/Resolved]

NARRATIVE: CASE EVENT DATE: 20180629
